FAERS Safety Report 4492099-1 (Version None)
Quarter: 2004Q3

REPORT INFORMATION
  Report Type: 
  Country: None (occurrence: None)
  Receive Date: 20040924
  Receipt Date: 20040715
  Transmission Date: 20050211
  Serious: Yes (Life-Threatening)
  Sender: FDA-Public Use
  Company Number: 04P-163-0267229-00

PATIENT
  Age: 47 Year
  Sex: Male

DRUGS (10)
  1. KALETRA [Suspect]
     Indication: HIV INFECTION
     Dosage: 500 MG, 2 IN 1 D, PER ORAL
     Route: 048
     Dates: start: 20040408
  2. STAVUDINE [Suspect]
     Indication: HIV INFECTION
     Dosage: 100 MG, 1 IN 1 D, PER ORAL
     Route: 048
     Dates: start: 20040408
  3. EMTRICITABINE [Suspect]
     Indication: HIV INFECTION
     Dosage: 200 MG, 1IN 1 D, PER ORAL
     Route: 048
     Dates: start: 20040408
  4. BACTRIM [Concomitant]
  5. TERAZOSIN HYDROCHLORIDE [Concomitant]
  6. METHADONE HCL [Concomitant]
  7. LEXAPRO [Concomitant]
  8. OMEPRAZOLE [Concomitant]
  9. LEVOTHYROXINE SODIUM [Concomitant]
  10. FUROSEMIDE [Concomitant]

REACTIONS (1)
  - NEUTROPENIA [None]
